FAERS Safety Report 12093491 (Version 1)
Quarter: 2016Q1

REPORT INFORMATION
  Report Type: Spontaneous
  Country: US (occurrence: US)
  Receive Date: 20160219
  Receipt Date: 20160219
  Transmission Date: 20160526
  Serious: Yes (Other)
  Sender: FDA-Public Use
  Company Number: US-ASTRAZENECA-2016SE15516

PATIENT
  Age: 57 Year
  Sex: Female
  Weight: 52.2 kg

DRUGS (5)
  1. SOMA [Suspect]
     Active Substance: CARISOPRODOL
     Dosage: BY CUTTING THE TABLETS INTO FOURTHS
     Route: 065
     Dates: start: 20160108
  2. ALPRAZOLAM. [Suspect]
     Active Substance: ALPRAZOLAM
     Indication: HYPOTONIA
     Route: 048
     Dates: start: 20160108
  3. ABILIFY [Suspect]
     Active Substance: ARIPIPRAZOLE
     Dosage: HALF OF A 20 MG TABLET TWICE A DAY
     Route: 048
     Dates: start: 20160130, end: 20160130
  4. OXYCODONE [Concomitant]
     Active Substance: OXYCODONE
     Indication: PAIN
     Route: 048
     Dates: start: 20160113
  5. SEROQUEL [Suspect]
     Active Substance: QUETIAPINE FUMARATE
     Indication: MENTAL DISORDER
     Route: 048
     Dates: start: 20160123, end: 20160124

REACTIONS (10)
  - Platelet count increased [Unknown]
  - Nasal congestion [Recovered/Resolved]
  - White blood cell count increased [Unknown]
  - Dysphonia [Recovered/Resolved]
  - Aphonia [Recovered/Resolved]
  - Hypotonia [Recovered/Resolved]
  - Dyskinesia [Recovered/Resolved]
  - Tremor [Recovered/Resolved]
  - Gait disturbance [Recovered/Resolved]
  - Feeling abnormal [Unknown]

NARRATIVE: CASE EVENT DATE: 20160121
